FAERS Safety Report 5748706-6 (Version None)
Quarter: 2008Q2

REPORT INFORMATION
  Report Type: 
  Country: None (occurrence: None)
  Receive Date: 20080521
  Receipt Date: 20080512
  Transmission Date: 20081010
  Serious: Yes (Other)
  Sender: FDA-Public Use
  Company Number: GXKR2008GB04401

PATIENT
  Age: 79 Year
  Sex: Male
  Weight: 65 kg

DRUGS (10)
  1. ACETYLSALICYLIC ACID SRT [Suspect]
     Indication: PROPHYLAXIS
     Dosage: 75 MG, QD,
     Dates: start: 19950306
  2. FERROUS SULPHATE (NGX)(FERROUS SULFATE) UNKNOWN [Suspect]
     Indication: ANAEMIA
     Dosage: 200 MG, QD,
     Dates: start: 20040224
  3. TAMSULOSIN HCL [Suspect]
     Dosage: 400 UG, QD,
     Dates: start: 20061120
  4. ATORVASTATIN CALCIUM [Suspect]
     Indication: HYPERCHOLESTEROLAEMIA
     Dosage: 20 MG, QD,
     Dates: start: 20070221
  5. EPOETIN BETA(EPOETIN BETA) [Suspect]
     Indication: ANAEMIA
     Dosage: 1 DF, 6 TIMES PER WEEK,
     Dates: start: 20060114
  6. HYDROXOCOBALAMIN(HYDROXOCOBALAMIN) [Suspect]
     Dosage: 5 DF, 3 MONTHS,
     Dates: start: 20070221
  7. LANSOPRAZOLE [Suspect]
     Indication: PROPHYLAXIS AGAINST GASTROINTESTINAL ULCER
     Dosage: 30 MG, BID,
     Dates: start: 20061228
  8. ACETAMINOPHEN [Suspect]
     Dosage: 2 DF, QID,
     Dates: start: 20010501
  9. VALSARTAN [Suspect]
     Indication: HYPERTENSION
     Dosage: 40 MG, QD,
     Dates: start: 20060403
  10. VENTOLIN [Suspect]
     Indication: ASTHMA
     Dosage: PRN, INHALATION
     Route: 055
     Dates: start: 20031117

REACTIONS (1)
  - IDIOPATHIC PULMONARY FIBROSIS [None]
